FAERS Safety Report 12849332 (Version 2)
Quarter: 2016Q4

REPORT INFORMATION
  Report Type: Report from Study
  Country: BR (occurrence: BR)
  Receive Date: 20161014
  Receipt Date: 20161117
  Transmission Date: 20170207
  Serious: Yes (Other)
  Sender: FDA-Public Use
  Company Number: BR-BAYER-2013-044562

PATIENT
  Age: 29 Year
  Sex: Female

DRUGS (3)
  1. IMMUNOGLOBULIN [Concomitant]
     Active Substance: HUMAN IMMUNOGLOBULIN G
     Dosage: UNK UNK, Q1MON
     Route: 042
     Dates: start: 20130301
  2. BETAFERON [Suspect]
     Active Substance: INTERFERON BETA-1B
     Indication: MULTIPLE SCLEROSIS
     Dosage: 1 ML, QOD
     Route: 058
     Dates: end: 2014
  3. BETAFERON [Suspect]
     Active Substance: INTERFERON BETA-1B
     Indication: MULTIPLE SCLEROSIS
     Dosage: 1 ML, QOD
     Route: 058
     Dates: start: 201106, end: 201207

REACTIONS (9)
  - Maternal exposure during pregnancy [None]
  - Foetal death [None]
  - Postpartum haemorrhage [Recovered/Resolved]
  - Motor dysfunction [Not Recovered/Not Resolved]
  - Hypoaesthesia [Not Recovered/Not Resolved]
  - Blighted ovum [None]
  - Retained placenta operation [None]
  - Multiple sclerosis relapse [Not Recovered/Not Resolved]
  - Musculoskeletal disorder [Not Recovered/Not Resolved]

NARRATIVE: CASE EVENT DATE: 20120630
